FAERS Safety Report 19483300 (Version 2)
Quarter: 2021Q3

REPORT INFORMATION
  Report Type: Spontaneous
  Country: GB (occurrence: GB)
  Receive Date: 20210701
  Receipt Date: 20210909
  Transmission Date: 20211014
  Serious: Yes (Other)
  Sender: FDA-Public Use
  Company Number: GB-AMGEN-GBRSP2017177361

PATIENT
  Age: 78 Year
  Sex: Female

DRUGS (2)
  1. PROLIA [Suspect]
     Active Substance: DENOSUMAB
     Indication: OSTEOPOROSIS POSTMENOPAUSAL
     Dosage: 60 MILLIGRAM, Q6MO
     Route: 065
     Dates: start: 20170928, end: 2017
  2. COVID?19 VACCINE [Concomitant]

REACTIONS (12)
  - Thoracic vertebral fracture [Unknown]
  - Cardiac output increased [Unknown]
  - Dyspnoea [Unknown]
  - Rash [Unknown]
  - Heart valve incompetence [Unknown]
  - Intestinal haemorrhage [Unknown]
  - Fractured sacrum [Unknown]
  - Urticaria [Unknown]
  - Chest discomfort [Unknown]
  - Bronchospasm [Unknown]
  - Cardiac pacemaker insertion [Unknown]
  - Anaemia [Unknown]

NARRATIVE: CASE EVENT DATE: 2017
